FAERS Safety Report 6795439-3 (Version None)
Quarter: 2010Q2

REPORT INFORMATION
  Report Type: 
  Country: None (occurrence: None)
  Receive Date: 20100625
  Receipt Date: 20100616
  Transmission Date: 20101027
  Serious: Yes (Hospitalization)
  Sender: FDA-Public Use
  Company Number: BE-JNJFOC-20100604782

PATIENT
  Sex: Female

DRUGS (7)
  1. GALANTAMINE HYDROBROMIDE [Suspect]
     Indication: DEMENTIA ALZHEIMER'S TYPE
     Route: 048
  2. AVELOX [Suspect]
     Indication: DRUG USE FOR UNKNOWN INDICATION
     Route: 048
  3. PLAVIX [Concomitant]
     Route: 048
  4. FUROSEMIDE [Concomitant]
     Route: 048
  5. DOGMATIL [Concomitant]
     Route: 048
  6. OCUVITE NOS [Concomitant]
     Route: 048
  7. LACTOBACILLUS ACIDOPHILUS [Concomitant]
     Route: 048

REACTIONS (8)
  - DEPRESSION [None]
  - DIARRHOEA [None]
  - ELECTROCARDIOGRAM QT PROLONGED [None]
  - GASTROINTESTINAL DISORDER [None]
  - HYPERTENSION [None]
  - SYNCOPE [None]
  - VERTIGO [None]
  - VOMITING [None]
